FAERS Safety Report 15764300 (Version 2)
Quarter: 2019Q1

REPORT INFORMATION
  Report Type: Spontaneous
  Country: US (occurrence: US)
  Receive Date: 20181227
  Receipt Date: 20190102
  Transmission Date: 20190417
  Serious: No
  Sender: FDA-Public Use
  Company Number: US-PCCINC-2018-PEL-003344

PATIENT

DRUGS (4)
  1. GABLOFEN [Suspect]
     Active Substance: BACLOFEN
     Indication: BRAIN INJURY
     Dosage: 50 ?G, QD
     Route: 037
     Dates: start: 20171130
  2. VESICARE [Concomitant]
     Active Substance: SOLIFENACIN SUCCINATE
     Dosage: UNK
     Route: 065
  3. GABLOFEN [Suspect]
     Active Substance: BACLOFEN
     Indication: MUSCLE SPASTICITY
     Dosage: 875 ?G, QD
     Route: 037
  4. BACLOFEN. [Concomitant]
     Active Substance: BACLOFEN
     Dosage: UNK, PRN
     Route: 048

REACTIONS (2)
  - Drug ineffective [Unknown]
  - Hypertonia [Recovered/Resolved]

NARRATIVE: CASE EVENT DATE: 20161010
